FAERS Safety Report 5140343-X (Version None)
Quarter: 2006Q4

REPORT INFORMATION
  Report Type: 
  Country: None (occurrence: None)
  Receive Date: 20061031
  Receipt Date: 20061025
  Transmission Date: 20070319
  Serious: Yes (Life-Threatening)
  Sender: FDA-Public Use
  Company Number: 2006AP05109

PATIENT
  Age: 21 Year
  Sex: Female

DRUGS (2)
  1. MARCAIN SPINAL INJECTION [Suspect]
     Indication: SPINAL ANAESTHESIA
     Dosage: 2.4 ML IN L2/3 INTERSPACE IN THE RIGHT LATERAL
     Route: 037
  2. PROPYLTHIOURACIL [Concomitant]
     Indication: HYPERTHYROIDISM
     Route: 048

REACTIONS (5)
  - BRADYCARDIA [None]
  - CARDIAC ARREST [None]
  - CARDIOTOXICITY [None]
  - LOSS OF CONSCIOUSNESS [None]
  - RESPIRATORY ARREST [None]
